FAERS Safety Report 10251024 (Version 1)
Quarter: 2014Q2

REPORT INFORMATION
  Report Type: Spontaneous
  Country: US (occurrence: US)
  Receive Date: 20140620
  Receipt Date: 20140620
  Transmission Date: 20141212
  Serious: Yes (Hospitalization, Other)
  Sender: FDA-Public Use
  Company Number: US-CELGENEUS-163-21880-14061642

PATIENT
  Age: 81 Year
  Sex: Male

DRUGS (3)
  1. REVLIMID [Suspect]
     Indication: PLASMA CELL MYELOMA
     Dosage: 15 MILLIGRAM
     Route: 047
     Dates: start: 201303
  2. REVLIMID [Suspect]
     Dosage: 25 MILLIGRAM
     Route: 047
     Dates: start: 201304
  3. REVLIMID [Suspect]
     Dosage: 25 MILLIGRAM
     Route: 047
     Dates: start: 20140417

REACTIONS (1)
  - Cardiac valve disease [Recovered/Resolved with Sequelae]
